FAERS Safety Report 9666065 (Version 1)
Quarter: 2013Q4

REPORT INFORMATION
  Report Type: Spontaneous
  Country: JP (occurrence: JP)
  Receive Date: 20131104
  Receipt Date: 20131104
  Transmission Date: 20140711
  Serious: Yes (Other)
  Sender: FDA-Public Use
  Company Number: JP-ASTRAZENECA-2013SE80421

PATIENT
  Sex: 0

DRUGS (3)
  1. NEXIUM [Suspect]
     Route: 048
  2. WARFARIN [Interacting]
     Dosage: DOSE UNKNOWN
     Route: 048
  3. PLAVIX [Concomitant]
     Dosage: DOSE UNKNOWN
     Route: 048

REACTIONS (3)
  - Drug interaction [Recovered/Resolved]
  - International normalised ratio increased [Recovered/Resolved]
  - Gastric haemorrhage [Recovered/Resolved]
